FAERS Safety Report 15692280 (Version 1)
Quarter: 2018Q4

REPORT INFORMATION
  Report Type: Spontaneous
  Country: US (occurrence: US)
  Receive Date: 20181205
  Receipt Date: 20181205
  Transmission Date: 20190205
  Serious: Yes (Other)
  Sender: FDA-Public Use
  Company Number: US-TITAN PHARMACEUTICALS-2018TAN00121

PATIENT
  Age: 29 Year
  Sex: Female
  Weight: 59.86 kg

DRUGS (4)
  1. PROBUPHINE [Suspect]
     Active Substance: BUPRENORPHINE HYDROCHLORIDE
     Indication: ANXIETY
     Dosage: 3 DOSAGE UNITS, ONCE
     Route: 059
     Dates: start: 201808, end: 20181101
  2. PROBUPHINE [Suspect]
     Active Substance: BUPRENORPHINE HYDROCHLORIDE
     Indication: DEPRESSION
  3. METHAMPHETAMINE [Concomitant]
     Active Substance: METHAMPHETAMINE
  4. PROBUPHINE [Suspect]
     Active Substance: BUPRENORPHINE HYDROCHLORIDE
     Indication: SUBSTANCE ABUSE
     Dosage: 4 DOSAGE UNITS, ONCE
     Route: 059
     Dates: start: 20180703, end: 201808

REACTIONS (3)
  - Device expulsion [Recovered/Resolved]
  - Implant site abscess [Unknown]
  - Treatment noncompliance [Not Recovered/Not Resolved]

NARRATIVE: CASE EVENT DATE: 2018
